FAERS Safety Report 8101722-1 (Version None)
Quarter: 2012Q1

REPORT INFORMATION
  Report Type: 
  Country: None (occurrence: None)
  Receive Date: 20120126
  Receipt Date: 20120112
  Transmission Date: 20120608
  Serious: Yes (Hospitalization, Other)
  Sender: FDA-Public Use
  Company Number: 2011MA002527

PATIENT
  Sex: Female
  Weight: 89.3586 kg

DRUGS (50)
  1. CEFTIN [Concomitant]
  2. FIBER [Concomitant]
  3. HYDROCHLOROTHIAIDE [Concomitant]
  4. LORAZEPAM [Concomitant]
  5. MACROBID [Concomitant]
  6. NPH INSULIN [Concomitant]
  7. BACTROBAN [Concomitant]
  8. CLINDAMYCIN [Concomitant]
  9. PREMARIN [Concomitant]
  10. VOLTAREN [Concomitant]
  11. AVANDIA [Concomitant]
  12. CIPROFLOXACIN [Concomitant]
  13. GLUCOPHAGE [Concomitant]
  14. LACTULOSE [Concomitant]
  15. MECLIZINE [Concomitant]
  16. ULTRAM [Concomitant]
  17. AUGMENTIN '125' [Concomitant]
  18. COLACE [Concomitant]
  19. DETROL [Concomitant]
  20. LEVAQUIN [Concomitant]
  21. NAPROSYN [Concomitant]
  22. NITROGLYCERIN [Concomitant]
  23. PROTONIX [Concomitant]
  24. SUCRALFATE [Concomitant]
  25. VITAMIN B-12 [Concomitant]
  26. METOCLOPRAMIDE [Suspect]
     Dosage: 5 MG/5ML-2 TSP;QID;
     Dates: start: 20020711, end: 20060101
  27. FLEXERIL [Concomitant]
  28. ISOSORBIDE DINITRATE [Concomitant]
  29. HYDROCODONE BITARTRATE [Concomitant]
  30. ABILIFY [Concomitant]
  31. BONIVA [Concomitant]
  32. BENTYL [Concomitant]
  33. FOSAMAX [Concomitant]
  34. LIPITOR [Concomitant]
  35. APAP TAB [Concomitant]
  36. OMEPRAZOLE [Concomitant]
  37. BACTRIM [Concomitant]
  38. FERROUS SULFATE TAB [Concomitant]
  39. FIORICET [Concomitant]
  40. FOLIC ACID [Concomitant]
  41. LASIX [Concomitant]
  42. M.V.I. [Concomitant]
  43. PREVACID [Concomitant]
  44. ACETAMINOPHEN [Concomitant]
  45. ZOLOFT [Concomitant]
  46. KEFLEX [Concomitant]
  47. MACRODANTIN [Concomitant]
  48. METFORMIN HCL [Concomitant]
  49. PRANDIN [Concomitant]
  50. ZOCOR [Concomitant]

REACTIONS (72)
  - HEPATITIS INFECTIOUS [None]
  - CELLULITIS [None]
  - TARDIVE DYSKINESIA [None]
  - EMOTIONAL DISORDER [None]
  - ABDOMINAL PAIN [None]
  - DIARRHOEA [None]
  - IRRITABLE BOWEL SYNDROME [None]
  - OSTEOPENIA [None]
  - SUICIDAL IDEATION [None]
  - DIZZINESS [None]
  - OSTEOARTHRITIS [None]
  - DIABETES MELLITUS INADEQUATE CONTROL [None]
  - HEPATOSPLENOMEGALY [None]
  - PYELONEPHRITIS [None]
  - COLONIC POLYP [None]
  - AKATHISIA [None]
  - TREMOR [None]
  - TYPE 2 DIABETES MELLITUS [None]
  - MUSCULOSKELETAL PAIN [None]
  - BACK PAIN [None]
  - DYSPNOEA [None]
  - SINUSITIS [None]
  - LUNG HYPERINFLATION [None]
  - HEAD INJURY [None]
  - DYSKINESIA [None]
  - GASTROOESOPHAGEAL REFLUX DISEASE [None]
  - DEATH OF RELATIVE [None]
  - HYPOAESTHESIA [None]
  - PAIN [None]
  - NAUSEA [None]
  - FALL [None]
  - ROAD TRAFFIC ACCIDENT [None]
  - OEDEMA PERIPHERAL [None]
  - RENAL FAILURE CHRONIC [None]
  - ABDOMINAL TENDERNESS [None]
  - DYSTONIA [None]
  - HYPERTENSION [None]
  - GASTRITIS [None]
  - IMPAIRED GASTRIC EMPTYING [None]
  - CONSTIPATION [None]
  - GLYCOSYLATED HAEMOGLOBIN INCREASED [None]
  - HYPERLIPIDAEMIA [None]
  - OROPHARYNGEAL PAIN [None]
  - NEPHROPATHY [None]
  - MIGRAINE [None]
  - INTERVERTEBRAL DISC PROTRUSION [None]
  - HEPATIC FUNCTION ABNORMAL [None]
  - URINARY TRACT INFECTION [None]
  - ASTHENIA [None]
  - DIET REFUSAL [None]
  - ANXIETY [None]
  - FEELING ABNORMAL [None]
  - VERTIGO [None]
  - OSTEOPOROSIS [None]
  - PARAESTHESIA [None]
  - KIDNEY ENLARGEMENT [None]
  - ECONOMIC PROBLEM [None]
  - NEPHROLITHIASIS [None]
  - DIVERTICULITIS [None]
  - DEPRESSION [None]
  - CHEST PAIN [None]
  - OEDEMA [None]
  - BLOOD PRESSURE INCREASED [None]
  - HEPATITIS A VIRUS TEST POSITIVE [None]
  - STRESS [None]
  - EXTRAPYRAMIDAL DISORDER [None]
  - HEPATIC ENZYME INCREASED [None]
  - UPPER RESPIRATORY TRACT INFECTION [None]
  - PERNICIOUS ANAEMIA [None]
  - RENAL IMPAIRMENT [None]
  - GAIT DISTURBANCE [None]
  - WEIGHT INCREASED [None]
